FAERS Safety Report 9450809 (Version 2)
Quarter: 2013Q3

REPORT INFORMATION
  Report Type: Spontaneous
  Country: US (occurrence: US)
  Receive Date: 20130809
  Receipt Date: 20130909
  Transmission Date: 20140515
  Serious: Yes (Hospitalization)
  Sender: FDA-Public Use
  Company Number: US-ELI_LILLY_AND_COMPANY-US201308000888

PATIENT
  Age: 62 Year
  Sex: Male
  Weight: 110 kg

DRUGS (5)
  1. INSULIN HUMAN [Suspect]
     Indication: TYPE 2 DIABETES MELLITUS
     Dosage: UNK
  2. INSULIN HUMAN [Suspect]
     Dosage: 20 U, EACH MORNING
  3. INSULIN HUMAN [Suspect]
     Dosage: 16 U, EACH EVENING
  4. INSULIN HUMAN [Suspect]
     Dosage: 100 U, EACH MORNING
  5. INSULIN HUMAN [Suspect]
     Dosage: 80 U, EACH EVENING

REACTIONS (5)
  - Pyrexia [Unknown]
  - Headache [Unknown]
  - Lyme disease [Unknown]
  - Hyperglycaemia [Unknown]
  - Underdose [Recovered/Resolved]
